FAERS Safety Report 7363025-2 (Version None)
Quarter: 2011Q1

REPORT INFORMATION
  Report Type: 
  Country: None (occurrence: None)
  Receive Date: 20110321
  Receipt Date: 20110315
  Transmission Date: 20110831
  Serious: No
  Sender: FDA-Public Use
  Company Number: US-PFIZER INC-2011031501

PATIENT
  Sex: Male
  Weight: 81.63 kg

DRUGS (4)
  1. PRISTIQ [Suspect]
     Indication: DEPRESSION
     Dosage: 50 MG, 1X/DAY
     Route: 048
     Dates: start: 20110118, end: 20110201
  2. ZOCOR [Concomitant]
     Indication: HYPERLIPIDAEMIA
     Dosage: 20 MG, 1X/DAY QHS
  3. VIAGRA [Concomitant]
     Indication: SEXUAL DYSFUNCTION
     Dosage: 50 MG, UNK
  4. TENORMIN [Concomitant]
     Indication: HYPERTENSION
     Dosage: 25 MG, 1X/DAY

REACTIONS (1)
  - HEADACHE [None]
